FAERS Safety Report 9308565 (Version 2)
Quarter: 2013Q2

REPORT INFORMATION
  Report Type: Spontaneous
  Country: BR (occurrence: BR)
  Receive Date: 20130524
  Receipt Date: 20130529
  Transmission Date: 20140414
  Serious: Yes (Death)
  Sender: FDA-Public Use
  Company Number: CHNY2013BR001179

PATIENT
  Age: 90 Year
  Sex: Female

DRUGS (1)
  1. CIBALENAA [Suspect]
     Dosage: UNK, UNK

REACTIONS (1)
  - Death [Fatal]
